FAERS Safety Report 8287389-0 (Version None)
Quarter: 2012Q2

REPORT INFORMATION
  Report Type: 
  Country: None (occurrence: None)
  Receive Date: 20120416
  Receipt Date: 20120411
  Transmission Date: 20120825
  Serious: Yes (Hospitalization)
  Sender: FDA-Public Use
  Company Number: FR-PFIZER INC-2012089909

PATIENT
  Age: 31 Year
  Sex: Male

DRUGS (2)
  1. AMLODIPINE BESYLATE [Suspect]
     Indication: CARDIAC ARREST
     Dosage: UNK
     Route: 048
     Dates: start: 20120202
  2. ISOPTIN [Suspect]
     Indication: CARDIAC ARREST
     Dosage: UNK
     Route: 048
     Dates: start: 20120202

REACTIONS (1)
  - BONE MARROW FAILURE [None]
